FAERS Safety Report 21314721 (Version 1)
Quarter: 2022Q3

REPORT INFORMATION
  Report Type: Spontaneous
  Country: US (occurrence: None)
  Receive Date: 20220909
  Receipt Date: 20220909
  Transmission Date: 20221027
  Serious: No
  Sender: FDA-Public Use
  Company Number: US-ARIS GLOBAL-202110-1962

PATIENT
  Sex: Female
  Weight: 39.498 kg

DRUGS (18)
  1. OXERVATE [Suspect]
     Active Substance: CENEGERMIN-BKBJ
     Indication: Neurotrophic keratopathy
     Route: 047
     Dates: start: 20211018
  2. OXERVATE [Suspect]
     Active Substance: CENEGERMIN-BKBJ
     Indication: Hypoaesthesia eye
  3. ZIOPTAN [Concomitant]
     Active Substance: TAFLUPROST
     Dosage: ON BOTH EYES BEFORE BED
  4. OMEPRAZOLE [Concomitant]
     Active Substance: OMEPRAZOLE
     Dosage: IN THE MORNING
  5. ROSUVASTATIN [Concomitant]
     Active Substance: ROSUVASTATIN
  6. FAMOTIDINE [Concomitant]
     Active Substance: FAMOTIDINE
     Dosage: AT NIGHT
  7. Mini Omega 3 [Concomitant]
  8. Citracal 1200 [Concomitant]
  9. Juice Plus fruit blend once [Concomitant]
  10. Juice Plus vegetable blend once [Concomitant]
  11. ZEAXANTHIN [Concomitant]
     Active Substance: ZEAXANTHIN
  12. BIOTIN [Concomitant]
     Active Substance: BIOTIN
  13. VITAMIN C [Concomitant]
     Active Substance: ASCORBIC ACID
  14. VITAMIN D [Concomitant]
     Active Substance: VITAMIN D NOS
  15. MAGNESIUM [Concomitant]
     Active Substance: MAGNESIUM
  16. VITAMIN B12 [Concomitant]
     Active Substance: CYANOCOBALAMIN
  17. PROBIOTICS NOS [Concomitant]
     Active Substance: PROBIOTICS NOS
  18. ASPIRIN [Concomitant]
     Active Substance: ASPIRIN

REACTIONS (3)
  - Accidental overdose [Unknown]
  - Device use issue [Unknown]
  - Eye pain [Not Recovered/Not Resolved]
